FAERS Safety Report 21877236 (Version 1)
Quarter: 2023Q1

REPORT INFORMATION
  Report Type: Spontaneous
  Country: US (occurrence: US)
  Receive Date: 20230118
  Receipt Date: 20230118
  Transmission Date: 20230418
  Serious: Yes (Death, Other)
  Sender: FDA-Public Use
  Company Number: US-BRISTOL-MYERS SQUIBB COMPANY-2023-003769

PATIENT
  Age: 74 Year
  Sex: Female

DRUGS (1)
  1. THALOMID [Suspect]
     Active Substance: THALIDOMIDE
     Indication: Gastrointestinal angiodysplasia
     Dosage: FREQUENCY: 28

REACTIONS (9)
  - Pneumonia aspiration [Fatal]
  - Ventricular fibrillation [Fatal]
  - Primary biliary cholangitis [Unknown]
  - Portal hypertension [Unknown]
  - Anorectal varices haemorrhage [Unknown]
  - CREST syndrome [Unknown]
  - Systemic scleroderma [Unknown]
  - Mycobacterium avium complex infection [Unknown]
  - Off label use [Unknown]
